FAERS Safety Report 8612978-0 (Version None)
Quarter: 2012Q3

REPORT INFORMATION
  Report Type: 
  Country: None (occurrence: None)
  Receive Date: 20120822
  Receipt Date: 20120809
  Transmission Date: 20120928
  Serious: Yes (Hospitalization)
  Sender: FDA-Public Use
  Company Number: JP-VERTEX PHARMACEUTICAL INC.-2012-019663

PATIENT
  Age: 58 Year
  Sex: Female

DRUGS (7)
  1. VX-950 [Suspect]
     Indication: HEPATITIS C
     Dosage: 2250 MG, QD
     Route: 048
     Dates: start: 20120627, end: 20120718
  2. VX-950 [Suspect]
     Dosage: 1500 MG, QD
     Route: 048
     Dates: start: 20120719, end: 20120725
  3. RIBAVIRIN [Concomitant]
     Indication: HEPATITIS C
     Dosage: 800 MG, QD
     Dates: start: 20120627, end: 20120724
  4. PEGINTERFERON ALFA-2B [Concomitant]
     Indication: HEPATITIS C
     Dosage: 1.5 A?G/KG, UNK
     Route: 058
     Dates: start: 20120627
  5. VX-950 [Suspect]
     Dosage: UNK
  6. RIBAVIRIN [Concomitant]
     Dosage: 400 UNK, UNK
     Route: 048
     Dates: start: 20120724
  7. ALPRAZOLAM [Concomitant]
     Dosage: 0.4 MG, UNK
     Route: 048
     Dates: start: 20120706

REACTIONS (5)
  - ANXIETY [None]
  - MALAISE [None]
  - RASH [None]
  - DECREASED APPETITE [None]
  - NAUSEA [None]
